FAERS Safety Report 20701279 (Version 2)
Quarter: 2022Q2

REPORT INFORMATION
  Report Type: Spontaneous
  Country: JP (occurrence: JP)
  Receive Date: 20220412
  Receipt Date: 20220524
  Transmission Date: 20220721
  Serious: Yes (Hospitalization, Other)
  Sender: FDA-Public Use
  Company Number: JP-PFIZER INC-202200513083

PATIENT
  Age: 75 Year
  Sex: Male

DRUGS (9)
  1. PREGABALIN [Suspect]
     Active Substance: PREGABALIN
     Indication: Lumbar spinal stenosis
     Dosage: 50 MG, 2X/DAY
     Route: 048
     Dates: start: 20220112
  2. AMLODIPINE BESYLATE [Concomitant]
     Active Substance: AMLODIPINE BESYLATE
  3. CANDESARTAN CILEXETIL\HYDROCHLOROTHIAZIDE [Concomitant]
     Active Substance: CANDESARTAN CILEXETIL\HYDROCHLOROTHIAZIDE
  4. OMEPRAZOLE [Concomitant]
     Active Substance: OMEPRAZOLE
  5. KETOPROFEN [Concomitant]
     Active Substance: KETOPROFEN
  6. TAMSULOSIN HYDROCHLORIDE [Concomitant]
     Active Substance: TAMSULOSIN HYDROCHLORIDE
  7. CERNILTON [CERNITIN GBX;CERNITIN T60] [Concomitant]
  8. ALLOPURINOL [Concomitant]
     Active Substance: ALLOPURINOL
  9. PRANOPROFEN [Concomitant]
     Active Substance: PRANOPROFEN

REACTIONS (1)
  - Rhabdomyolysis [Recovering/Resolving]

NARRATIVE: CASE EVENT DATE: 20220120
